FAERS Safety Report 18055179 (Version 1)
Quarter: 2020Q3

REPORT INFORMATION
  Report Type: Spontaneous
  Country: US (occurrence: US)
  Receive Date: 20200722
  Receipt Date: 20200722
  Transmission Date: 20201103
  Serious: Yes (Other)
  Sender: FDA-Public Use
  Company Number: US-009507513-2007USA006630

PATIENT
  Age: 19 Year
  Sex: Male

DRUGS (1)
  1. KEYTRUDA [Suspect]
     Active Substance: PEMBROLIZUMAB
     Indication: GLIOMA
     Dosage: 200 MILLIGRAM, EVERY 2?3 WEEKS

REACTIONS (2)
  - Off label use [Unknown]
  - Immune-mediated enterocolitis [Recovered/Resolved]
